FAERS Safety Report 9383802 (Version 2)
Quarter: 2013Q3

REPORT INFORMATION
  Report Type: Report from Study
  Country: FR (occurrence: FR)
  Receive Date: 20130704
  Receipt Date: 20130807
  Transmission Date: 20140515
  Serious: Yes (Hospitalization, Other)
  Sender: FDA-Public Use
  Company Number: FR-BRISTOL-MYERS SQUIBB COMPANY-19010560

PATIENT
  Age: 58 Year
  Sex: Female

DRUGS (10)
  1. PACLITAXEL [Suspect]
     Indication: NEOPLASM
     Dosage: RESTRD ON UNSPEC DAY AND REINTERRUPTED ON 23MAY2013?13MAY-21MAY13
     Route: 042
     Dates: start: 20130510
  2. ITRACONAZOLE [Concomitant]
     Dates: start: 201212
  3. DALTEPARIN [Concomitant]
     Dates: start: 20130516, end: 20130528
  4. NAPROXEN [Concomitant]
     Dates: start: 20130516, end: 20130528
  5. KALEORID [Concomitant]
     Dates: start: 20130510
  6. IMIDAPRIL HCL [Concomitant]
     Dosage: VASCORIDE
     Dates: start: 20130510
  7. HYDROCHLOROTHIAZIDE [Concomitant]
     Dates: start: 20130510
  8. ENDOTELON [Concomitant]
  9. ACTONEL [Concomitant]
  10. MAGNESIUM [Concomitant]

REACTIONS (5)
  - Gastrointestinal inflammation [Recovered/Resolved]
  - Anaemia [Recovered/Resolved]
  - Enterocolitis haemorrhagic [Not Recovered/Not Resolved]
  - Hypokalaemia [Recovered/Resolved]
  - Febrile neutropenia [Recovered/Resolved]
